FAERS Safety Report 17997609 (Version 1)
Quarter: 2020Q3

REPORT INFORMATION
  Report Type: Spontaneous
  Country: FR (occurrence: FR)
  Receive Date: 20200708
  Receipt Date: 20200708
  Transmission Date: 20201103
  Serious: Yes (Hospitalization)
  Sender: FDA-Public Use
  Company Number: FR-ANIPHARMA-2020-FR-000184

PATIENT
  Age: 83 Year
  Sex: Female

DRUGS (14)
  1. SETOFILM [Suspect]
     Active Substance: ONDANSETRON
     Dosage: 16 MG QD
     Route: 048
     Dates: start: 20200603, end: 20200608
  2. CODOLIPRANE [Concomitant]
     Active Substance: ACETAMINOPHEN\CODEINE PHOSPHATE
     Route: 065
  3. PREGABALIN. [Concomitant]
     Active Substance: PREGABALIN
     Route: 065
  4. BISOCE [Suspect]
     Active Substance: BISOPROLOL
     Dosage: 2.5 MG QD
     Route: 048
     Dates: end: 20200609
  5. FUROSEMIDE. [Suspect]
     Active Substance: FUROSEMIDE
     Dosage: 40 MG QD
     Route: 048
  6. PANTOPRAZOLE [Concomitant]
     Active Substance: PANTOPRAZOLE
     Route: 065
  7. ISOPTINE [Suspect]
     Active Substance: VERAPAMIL HYDROCHLORIDE
     Route: 048
     Dates: start: 20200602
  8. INNOHEP [Concomitant]
     Active Substance: TINZAPARIN SODIUM
     Route: 065
  9. GLUCIDION [Suspect]
     Active Substance: GLUCOSE, LIQUID\POTASSIUM CHLORIDE\SODIUM CHLORIDE
     Dosage: 1000 ML QD
     Route: 042
     Dates: start: 20200603, end: 20200609
  10. CANDESARTAN. [Suspect]
     Active Substance: CANDESARTAN
     Indication: HYPERTENSION
     Dosage: 8 MG QD
     Route: 048
     Dates: end: 20200609
  11. PAROXETINE ARROW [Suspect]
     Active Substance: PAROXETINE
     Dosage: 10 MG QD
     Route: 048
     Dates: start: 20200603, end: 20200609
  12. DIFFU K [Suspect]
     Active Substance: POTASSIUM CHLORIDE
     Dosage: 3 DF DAILY
     Route: 048
     Dates: start: 20200602, end: 20200609
  13. GEMZAR [Suspect]
     Active Substance: GEMCITABINE HYDROCHLORIDE
     Dosage: 1720 MG QD
     Route: 030
     Dates: start: 20200609, end: 20200609
  14. CORDARONE [Suspect]
     Active Substance: AMIODARONE HYDROCHLORIDE
     Dosage: 2 DF QD
     Route: 048
     Dates: end: 20200609

REACTIONS (2)
  - Hypotension [Recovered/Resolved]
  - Bradycardia [Recovered/Resolved]

NARRATIVE: CASE EVENT DATE: 20200609
